FAERS Safety Report 8307343-X (Version None)
Quarter: 2012Q2

REPORT INFORMATION
  Report Type: 
  Country: None (occurrence: None)
  Receive Date: 20120424
  Receipt Date: 20120416
  Transmission Date: 20120825
  Serious: Yes (Hospitalization)
  Sender: FDA-Public Use
  Company Number: US-BAYER-2011-115479

PATIENT
  Age: 28 Year
  Sex: Female
  Weight: 57.596 kg

DRUGS (8)
  1. YASMIN [Suspect]
     Indication: CONTRACEPTION
     Dosage: UNK
     Dates: start: 20050716, end: 20050723
  2. YASMIN [Suspect]
     Indication: PREMENSTRUAL SYNDROME
  3. AMBIEN [Concomitant]
     Indication: SLEEP DISORDER THERAPY
     Dosage: 5 MG, UNK
     Route: 048
     Dates: start: 20050721
  4. ZYRTEC [Concomitant]
     Dosage: 10 MG, UNK
     Route: 048
     Dates: start: 20050523
  5. NUVARING [Concomitant]
     Dosage: UNK
     Dates: start: 20050601
  6. FLONASE [Concomitant]
     Dosage: UNK
     Route: 045
     Dates: start: 20050510
  7. TYLENOL W/ CODEINE NO. 3 [Concomitant]
     Dosage: UNK
     Route: 048
     Dates: start: 20050510
  8. YASMIN [Suspect]
     Indication: MENORRHAGIA

REACTIONS (5)
  - CEREBRAL INFARCTION [None]
  - HEMIPLEGIA [None]
  - PAIN [None]
  - APHASIA [None]
  - MENTAL DISORDER [None]
